FAERS Safety Report 13670688 (Version 3)
Quarter: 2018Q3

REPORT INFORMATION
  Report Type: Report from Study
  Country: US (occurrence: US)
  Receive Date: 20170620
  Receipt Date: 20180815
  Transmission Date: 20181010
  Serious: Yes (Death)
  Sender: FDA-Public Use
  Company Number: US-KERYX BIOPHARMACEUTICALS INC.-2017US002952

PATIENT
  Sex: Male
  Weight: 90 kg

DRUGS (1)
  1. AURYXIA [Suspect]
     Active Substance: TETRAFERRIC TRICITRATE DECAHYDRATE
     Indication: BLOOD PHOSPHORUS INCREASED
     Dosage: 6 G (6 TAB), QD
     Route: 048
     Dates: start: 201612, end: 201703

REACTIONS (4)
  - Arrhythmia [Unknown]
  - Cardio-respiratory arrest [Fatal]
  - Abdominal pain [Unknown]
  - Myocardial infarction [Fatal]
